FAERS Safety Report 7925089 (Version 2)
Quarter: 2014Q1

REPORT INFORMATION
  Report Type: Report from Study
  Country: US (occurrence: US)
  Receive Date: 20110502
  Receipt Date: 20140309
  Transmission Date: 20141002
  Serious: Yes (Hospitalization, Other)
  Sender: FDA-Public Use
  Company Number: US-ASTRAZENECA-2009SE30750

PATIENT
  Age: 90 Year
  Sex: Male
  Weight: 63.5 kg

DRUGS (14)
  1. NEXIUM [Suspect]
     Indication: GASTROOESOPHAGEAL REFLUX DISEASE
     Route: 048
     Dates: start: 2005, end: 20140202
  2. NEXIUM [Suspect]
     Indication: OESOPHAGEAL DISORDER
     Route: 048
     Dates: start: 2005, end: 20140202
  3. PRILOSEC [Suspect]
     Route: 048
  4. CRESTOR [Suspect]
     Indication: BLOOD CHOLESTEROL ABNORMAL
     Route: 048
  5. CRESTOR [Suspect]
     Indication: BLOOD CHOLESTEROL ABNORMAL
     Route: 048
  6. CRESTOR [Suspect]
     Indication: BLOOD CHOLESTEROL ABNORMAL
     Route: 048
  7. ASPIRIN [Concomitant]
     Indication: CARDIAC DISORDER
     Route: 048
  8. CARVEDILOL [Concomitant]
     Indication: BLOOD PRESSURE ABNORMAL
     Route: 048
  9. PLAVIX [Concomitant]
     Route: 048
  10. LASIX [Concomitant]
     Indication: DIURETIC THERAPY
     Route: 048
  11. ISOSOBIDE DINITRATE [Concomitant]
     Route: 048
  12. LOSARTAN [Concomitant]
     Route: 048
  13. NITROGLYCERINE [Concomitant]
     Indication: CHEST PAIN
     Route: 061
  14. POTASSIUM CHLORIDE [Concomitant]
     Indication: PROPHYLAXIS
     Route: 048

REACTIONS (12)
  - Cardiac failure congestive [Recovered/Resolved]
  - Coronary artery restenosis [Not Recovered/Not Resolved]
  - Cardiac failure [Not Recovered/Not Resolved]
  - Anaemia [Unknown]
  - Weight decreased [Unknown]
  - Renal failure chronic [Unknown]
  - Dysphagia [Not Recovered/Not Resolved]
  - Aphagia [Unknown]
  - Oesophageal spasm [Unknown]
  - Drug dose omission [Not Recovered/Not Resolved]
  - Drug ineffective [Unknown]
  - Intentional drug misuse [Unknown]
